FAERS Safety Report 9221541 (Version 1)
Quarter: 2013Q2

REPORT INFORMATION
  Report Type: Spontaneous
  Country: US (occurrence: None)
  Receive Date: 20130408
  Receipt Date: 20130408
  Transmission Date: 20140414
  Serious: Yes (Hospitalization)
  Sender: FDA-Public Use
  Company Number: None

PATIENT
  Age: 46 Year
  Sex: Male
  Weight: 94.6 kg

DRUGS (1)
  1. CISPLATIN [Suspect]

REACTIONS (8)
  - Pain [None]
  - Refusal of treatment by patient [None]
  - Nausea [None]
  - Vomiting [None]
  - Dehydration [None]
  - Dysphagia [None]
  - Oral pain [None]
  - Oropharyngeal pain [None]
